FAERS Safety Report 7315379-0 (Version None)
Quarter: 2011Q1

REPORT INFORMATION
  Report Type: 
  Country: None (occurrence: None)
  Receive Date: 20110218
  Receipt Date: 20110218
  Transmission Date: 20110831
  Serious: Yes (Hospitalization)
  Sender: FDA-Public Use
  Company Number: None

PATIENT
  Age: 74 Year
  Sex: Female
  Weight: 61.2 kg

DRUGS (7)
  1. COUMADIN [Suspect]
     Indication: ATRIAL FIBRILLATION
     Dosage: 2.5MG W PO CHRONIC
     Route: 048
  2. RECLAST [Concomitant]
  3. TOPROL-XL [Concomitant]
  4. COUMADIN [Suspect]
     Indication: ATRIAL FIBRILLATION
     Dosage: 5MG SSMTTHF PO CHRONIC
     Route: 048
  5. CALCIUM CARBONATE [Concomitant]
  6. FLAXSEED [Concomitant]
  7. DETROL LA [Concomitant]

REACTIONS (1)
  - EPISTAXIS [None]
